FAERS Safety Report 10296450 (Version 2)
Quarter: 2014Q3

REPORT INFORMATION
  Report Type: Spontaneous
  Country: DE (occurrence: DE)
  Receive Date: 20140711
  Receipt Date: 20140822
  Transmission Date: 20150326
  Serious: Yes (Disabling, Other)
  Sender: FDA-Public Use
  Company Number: DE-JNJFOC-20140701996

PATIENT
  Age: 30 Year
  Sex: Male
  Weight: 90 kg

DRUGS (6)
  1. STELARA [Suspect]
     Active Substance: USTEKINUMAB
     Indication: PSORIATIC ARTHROPATHY
     Route: 058
     Dates: start: 20140412, end: 20140512
  2. MOMETASONE [Concomitant]
     Active Substance: MOMETASONE
  3. PSORCUTAN BETA [Concomitant]
  4. CLOBESOL [Concomitant]
     Active Substance: CLOBETASOL PROPIONATE
  5. OMEPRAZOLE. [Concomitant]
     Active Substance: OMEPRAZOLE
  6. BEROTEC [Concomitant]
     Active Substance: FENOTEROL HYDROBROMIDE

REACTIONS (2)
  - Atrial fibrillation [Recovered/Resolved]
  - Dissociative disorder [Not Recovered/Not Resolved]

NARRATIVE: CASE EVENT DATE: 20140527
